FAERS Safety Report 6654750-7 (Version None)
Quarter: 2010Q1

REPORT INFORMATION
  Report Type: 
  Country: None (occurrence: None)
  Receive Date: 20100327
  Receipt Date: 20100222
  Transmission Date: 20100710
  Serious: No
  Sender: FDA-Public Use
  Company Number: US-JNJFOC-20091202363

PATIENT
  Sex: Female

DRUGS (1)
  1. INVEGA [Suspect]
     Indication: TIC
     Route: 048

REACTIONS (2)
  - DIPLOPIA [None]
  - VISUAL IMPAIRMENT [None]
